FAERS Safety Report 25517258 (Version 1)
Quarter: 2025Q3

REPORT INFORMATION
  Report Type: Other
  Country: US (occurrence: US)
  Receive Date: 20250704
  Receipt Date: 20250704
  Transmission Date: 20251020
  Serious: Yes (Other)
  Sender: APTAPHARMA INC.
  Company Number: US-AptaPharma Inc.-2179929

PATIENT
  Age: 16 Month

DRUGS (6)
  1. FLUOXETINE HYDROCHLORIDE [Suspect]
     Active Substance: FLUOXETINE HYDROCHLORIDE
     Indication: Foetal exposure during pregnancy
  2. LITHIUM [Suspect]
     Active Substance: LITHIUM
  3. ESKETAMINE [Suspect]
     Active Substance: ESKETAMINE
  4. KETAMINE HYDROCHLORIDE [Suspect]
     Active Substance: KETAMINE HYDROCHLORIDE
  5. PRAZOSIN [Suspect]
     Active Substance: PRAZOSIN
  6. BUPROPION [Suspect]
     Active Substance: BUPROPION

REACTIONS (3)
  - Gross motor delay [Unknown]
  - Foetal exposure during pregnancy [Unknown]
  - Language disorder [Unknown]
